FAERS Safety Report 13962027 (Version 1)
Quarter: 2017Q3

REPORT INFORMATION
  Report Type: Spontaneous
  Country: DE (occurrence: DE)
  Receive Date: 20170912
  Receipt Date: 20170912
  Transmission Date: 20171128
  Serious: Yes (Other)
  Sender: FDA-Public Use
  Company Number: DE-MYLANLABS-2017M1057096

PATIENT
  Age: 58 Year
  Sex: Female

DRUGS (3)
  1. CLIONARA [Suspect]
     Active Substance: ESTRADIOL\NORETHINDRONE ACETATE
     Dosage: 1 DF, Q3D
     Route: 048
     Dates: start: 201704
  2. CLIONARA [Suspect]
     Active Substance: ESTRADIOL\NORETHINDRONE ACETATE
     Dosage: 1 DF, QOD
     Route: 048
     Dates: start: 201701
  3. CLIONARA [Suspect]
     Active Substance: ESTRADIOL\NORETHINDRONE ACETATE
     Indication: MENOPAUSAL DISORDER
     Dosage: 1 DF, QD
     Route: 048
     Dates: start: 2006

REACTIONS (4)
  - Musculoskeletal pain [Not Recovered/Not Resolved]
  - Metrorrhagia [Recovered/Resolved]
  - Postmenopausal haemorrhage [Not Recovered/Not Resolved]
  - Migraine [Not Recovered/Not Resolved]

NARRATIVE: CASE EVENT DATE: 2004
